FAERS Safety Report 5490915-8 (Version None)
Quarter: 2007Q4

REPORT INFORMATION
  Report Type: 
  Country: None (occurrence: None)
  Receive Date: 20071019
  Receipt Date: 20071005
  Transmission Date: 20080405
  Serious: Yes (Other)
  Sender: FDA-Public Use
  Company Number: US-AVENTIS-200717093US

PATIENT
  Sex: Female

DRUGS (12)
  1. LANTUS [Suspect]
     Indication: DIABETES MELLITUS
  2. LANTUS [Suspect]
     Dates: start: 20060801
  3. DRUG USED IN DIABETES [Suspect]
     Indication: DIABETES MELLITUS
     Route: 058
     Dates: start: 20070101
  4. NEXIUM [Suspect]
     Dosage: DOSE: UNK
     Dates: start: 20070801, end: 20070807
  5. PREDNISONE [Suspect]
  6. PREDNISONE [Suspect]
     Dates: start: 20070725, end: 20070730
  7. RANITIDINE HCL [Suspect]
     Dosage: DOSE: UNK
     Dates: start: 20050101, end: 20070801
  8. ANTIBIOTICS [Suspect]
     Dates: start: 20070725, end: 20070801
  9. AVANDIA [Suspect]
     Dosage: DOSE: UNK
     Dates: start: 20050101, end: 20070601
  10. GLUCOVANCE                         /01503701/ [Concomitant]
  11. MAALOX                             /00091001/ [Concomitant]
     Dosage: DOSE: UNK
     Dates: start: 20070808
  12. UNKNOWN DRUG [Concomitant]
     Dosage: DOSE: UNK
     Dates: start: 20070725

REACTIONS (21)
  - ABDOMINAL DISTENSION [None]
  - ABDOMINAL PAIN UPPER [None]
  - ANOREXIA [None]
  - ASTHMA [None]
  - BLOOD GLUCOSE INCREASED [None]
  - DEPRESSION [None]
  - DIARRHOEA [None]
  - DYSPNOEA [None]
  - GLYCOSYLATED HAEMOGLOBIN INCREASED [None]
  - INCREASED APPETITE [None]
  - INJECTION SITE ERYTHEMA [None]
  - MALAISE [None]
  - NAUSEA [None]
  - ORAL INTAKE REDUCED [None]
  - PNEUMONIA [None]
  - SWELLING [None]
  - TREMOR [None]
  - VIOLENCE-RELATED SYMPTOM [None]
  - WEIGHT DECREASED [None]
  - WEIGHT INCREASED [None]
  - WHEEZING [None]
